FAERS Safety Report 23623119 (Version 1)
Quarter: 2024Q1

REPORT INFORMATION
  Report Type: Spontaneous
  Country: US (occurrence: None)
  Receive Date: 20240312
  Receipt Date: 20240312
  Transmission Date: 20240409
  Serious: No
  Sender: FDA-Public Use
  Company Number: None

PATIENT
  Age: 45 Year
  Sex: Female
  Weight: 99 kg

DRUGS (6)
  1. UBRELVY [Suspect]
     Active Substance: UBROGEPANT
     Indication: Migraine
     Dosage: OTHER FREQUENCY : AS NEEDED;?
     Route: 048
  2. METHOTREXATE [Concomitant]
     Active Substance: METHOTREXATE
  3. HYDROXYCHLOROQUINE [Concomitant]
     Active Substance: HYDROXYCHLOROQUINE
  4. ALEVE [Concomitant]
     Active Substance: NAPROXEN SODIUM
  5. VITAMIN D NOS [Concomitant]
     Active Substance: VITAMIN D NOS
  6. FOLIC ACID [Concomitant]
     Active Substance: FOLIC ACID

REACTIONS (3)
  - Amylase abnormal [None]
  - Inflammation [None]
  - Arthralgia [None]

NARRATIVE: CASE EVENT DATE: 20220301
